FAERS Safety Report 7372497-9 (Version None)
Quarter: 2011Q1

REPORT INFORMATION
  Report Type: 
  Country: None (occurrence: None)
  Receive Date: 20110324
  Receipt Date: 20110317
  Transmission Date: 20110831
  Serious: Yes (Death)
  Sender: FDA-Public Use
  Company Number: GB-ELI_LILLY_AND_COMPANY-GB201103005607

PATIENT
  Sex: Male

DRUGS (5)
  1. FOLIC ACID [Concomitant]
  2. CISPLATIN [Concomitant]
  3. DICLOFENAC [Concomitant]
  4. ALIMTA [Suspect]
     Indication: NON-SMALL CELL LUNG CANCER
  5. MULTIVITAMIN [Concomitant]

REACTIONS (2)
  - DIARRHOEA [None]
  - MYOCARDIAL INFARCTION [None]
